FAERS Safety Report 9626569 (Version 3)
Quarter: 2015Q2

REPORT INFORMATION
  Report Type: Spontaneous
  Country: US (occurrence: US)
  Receive Date: 20131016
  Receipt Date: 20150413
  Transmission Date: 20150821
  Serious: Yes (Hospitalization, Other)
  Sender: FDA-Public Use
  Company Number: US-MERCK-1310USA006764

PATIENT
  Sex: Female
  Weight: 74.83 kg

DRUGS (1)
  1. JANUVIA [Suspect]
     Active Substance: SITAGLIPTIN PHOSPHATE
     Indication: TYPE 2 DIABETES MELLITUS
     Dosage: 100 MG, QD/ BID
     Route: 048
     Dates: start: 20070312, end: 2011

REACTIONS (42)
  - Adrenal mass [Unknown]
  - Arthritis [Unknown]
  - Pollakiuria [Unknown]
  - Dementia [Unknown]
  - Abdominal pain [Unknown]
  - Neurofibroma [Unknown]
  - Cardiomegaly [Unknown]
  - Nocturia [Unknown]
  - Muscle spasms [Unknown]
  - Lung neoplasm malignant [Unknown]
  - Blood glucose decreased [Unknown]
  - Loss of consciousness [Unknown]
  - Calculus urinary [Unknown]
  - Chest pain [Unknown]
  - Blood urea increased [Recovering/Resolving]
  - Atelectasis [Unknown]
  - Inappropriate schedule of drug administration [Unknown]
  - Cerebrovascular accident [Unknown]
  - Bronchitis [Unknown]
  - Asthenia [Unknown]
  - Sinus disorder [Unknown]
  - Nephropathy [Unknown]
  - Renal cyst [Unknown]
  - Blood glucose increased [Unknown]
  - Pneumonia [Unknown]
  - Appendicectomy [Unknown]
  - Decreased appetite [Unknown]
  - Abdominal distension [Unknown]
  - Blood creatinine increased [Recovering/Resolving]
  - Pancreatic carcinoma [Unknown]
  - Adrenalectomy [Unknown]
  - Pancreatectomy [Unknown]
  - Thirst [Unknown]
  - Hernia repair [Unknown]
  - Fatigue [Unknown]
  - Stress [Unknown]
  - Constipation [Unknown]
  - Vision blurred [Unknown]
  - Emphysema [Unknown]
  - Fatigue [Unknown]
  - Poor quality sleep [Unknown]
  - Incisional hernia [Unknown]

NARRATIVE: CASE EVENT DATE: 20070312
